FAERS Safety Report 4978768-5 (Version None)
Quarter: 2006Q2

REPORT INFORMATION
  Report Type: 
  Country: None (occurrence: None)
  Receive Date: 20060420
  Receipt Date: 20050421
  Transmission Date: 20061013
  Serious: Yes (Disabling)
  Sender: FDA-Public Use
  Company Number: US-MERCK-0504USA04470

PATIENT
  Age: 27 Year
  Sex: Female
  Weight: 58 kg

DRUGS (2)
  1. VIOXX [Suspect]
     Indication: ARTHRITIS
     Route: 048
     Dates: start: 20021001, end: 20040624
  2. HORMONAL CONTRACEPTIVES (UNSPECIFIED) [Concomitant]
     Indication: ACNE
     Route: 048
     Dates: start: 20020101, end: 20030801

REACTIONS (1)
  - CEREBROVASCULAR ACCIDENT [None]
